FAERS Safety Report 18133847 (Version 1)
Quarter: 2020Q3

REPORT INFORMATION
  Report Type: Spontaneous
  Country: US (occurrence: US)
  Receive Date: 20200811
  Receipt Date: 20200811
  Transmission Date: 20201103
  Serious: Yes (Hospitalization)
  Sender: FDA-Public Use
  Company Number: US-ASTRAZENECA-2020SE98727

PATIENT
  Age: 1044 Month
  Sex: Female
  Weight: 61.2 kg

DRUGS (2)
  1. BRILINTA [Suspect]
     Active Substance: TICAGRELOR
     Indication: STENT PLACEMENT
     Route: 048
     Dates: start: 20200503, end: 20200506
  2. XARELTO [Concomitant]
     Active Substance: RIVAROXABAN

REACTIONS (8)
  - Pain [Unknown]
  - Hypersensitivity [Unknown]
  - Insomnia [Unknown]
  - Sneezing [Unknown]
  - Gastrointestinal disorder [Unknown]
  - Decreased appetite [Unknown]
  - Ageusia [Unknown]
  - Taste disorder [Unknown]

NARRATIVE: CASE EVENT DATE: 202005
